FAERS Safety Report 5986589-X (Version None)
Quarter: 2008Q4

REPORT INFORMATION
  Report Type: 
  Country: None (occurrence: None)
  Receive Date: 20081203
  Receipt Date: 20081120
  Transmission Date: 20090506
  Serious: Yes (Hospitalization)
  Sender: FDA-Public Use
  Company Number: 2008SP023823

PATIENT
  Age: 64 Year
  Sex: Male
  Weight: 64 kg

DRUGS (6)
  1. TEMODAL [Suspect]
     Indication: CHEMOTHERAPY
     Dosage: 125 MG;QD;PO;  80 MG.QD; PO
     Route: 048
     Dates: start: 20080909, end: 20080925
  2. TEMODAL [Suspect]
     Indication: CHEMOTHERAPY
     Dosage: 125 MG;QD;PO;  80 MG.QD; PO
     Route: 048
     Dates: start: 20081017, end: 20081021
  3. MIRTAZAPINE [Suspect]
     Indication: ANTIDEPRESSANT THERAPY
     Dosage: 30 MG;QD; PO
     Route: 048
     Dates: start: 20080908, end: 20080925
  4. KEPPRA [Suspect]
     Indication: EPILEPSY
     Dosage: 500 MG;TID; PO
     Route: 048
     Dates: start: 20080819, end: 20080922
  5. KEPPRA [Suspect]
     Indication: PROPHYLAXIS
     Dosage: 500 MG;TID; PO
     Route: 048
     Dates: start: 20080819, end: 20080922
  6. FRAGMIN [Suspect]
     Indication: THROMBOSIS PROPHYLAXIS
     Dosage: 10000 IU;QD;SC
     Route: 058
     Dates: start: 20080904, end: 20080922

REACTIONS (3)
  - CHOLESTASIS [None]
  - HEPATIC STEATOSIS [None]
  - HEPATOTOXICITY [None]
